FAERS Safety Report 20076951 (Version 1)
Quarter: 2021Q4

REPORT INFORMATION
  Report Type: Spontaneous
  Country: US (occurrence: None)
  Receive Date: 20211115
  Receipt Date: 20211115
  Transmission Date: 20220303
  Serious: Yes (Hospitalization)
  Sender: FDA-Public Use
  Company Number: None

PATIENT
  Sex: Male

DRUGS (1)
  1. VIGABATRIN [Suspect]
     Active Substance: VIGABATRIN
     Indication: Focal dyscognitive seizures
     Dosage: OTHER QUANTITY : 4 PACKETS ;?FREQUENCY : TWICE A DAY;?
     Route: 048
     Dates: start: 20170913

REACTIONS (1)
  - Weight decreased [None]
